FAERS Safety Report 5596709-7 (Version None)
Quarter: 2008Q1

REPORT INFORMATION
  Report Type: 
  Country: None (occurrence: None)
  Receive Date: 20080118
  Receipt Date: 20080109
  Transmission Date: 20080703
  Serious: Yes (Death)
  Sender: FDA-Public Use
  Company Number: US-PFIZER INC-2008003161

PATIENT
  Age: 28 Year
  Sex: Female

DRUGS (8)
  1. ZIPRASIDONE (CAPS) [Suspect]
     Route: 048
  2. GABAPENTIN [Suspect]
     Route: 048
  3. DILTIAZEM HCL [Suspect]
     Route: 048
  4. CLONIDINE [Suspect]
     Route: 048
  5. BUPROPION HCL [Suspect]
     Route: 048
  6. QUETIAPINE [Suspect]
     Route: 048
  7. TIZANIDINE HCL [Suspect]
     Route: 048
  8. DULOXETINE [Suspect]
     Route: 048

REACTIONS (1)
  - COMPLETED SUICIDE [None]
